FAERS Safety Report 5118134-5 (Version None)
Quarter: 2006Q4

REPORT INFORMATION
  Report Type: 
  Country: None (occurrence: None)
  Receive Date: 20061002
  Receipt Date: 20060921
  Transmission Date: 20070319
  Serious: Yes (Other)
  Sender: FDA-Public Use
  Company Number: PHNU2006DE03208

PATIENT

DRUGS (2)
  1. ZOMETA [Suspect]
     Dosage: 4 MG, QMO
  2. FEMARA [Suspect]
     Dosage: 2.5 MG/DAY
     Route: 048

REACTIONS (1)
  - DUODENITIS [None]
